FAERS Safety Report 5927417-8 (Version None)
Quarter: 2008Q4

REPORT INFORMATION
  Report Type: 
  Country: None (occurrence: None)
  Receive Date: 20081021
  Receipt Date: 20081021
  Transmission Date: 20090506
  Serious: Yes (Other)
  Sender: FDA-Public Use
  Company Number: None

PATIENT
  Sex: Male
  Weight: 134.6276 kg

DRUGS (2)
  1. PACLITAXEL [Suspect]
     Indication: SMALL CELL LUNG CANCER STAGE UNSPECIFIED
     Dosage: 433MG; Q3WKS;IV
     Route: 042
     Dates: start: 20080925
  2. PACLITAXEL [Suspect]
     Indication: SMALL CELL LUNG CANCER STAGE UNSPECIFIED
     Dosage: 433MG; Q3WKS;IV
     Route: 042
     Dates: start: 20081017

REACTIONS (1)
  - PRURITUS [None]
